FAERS Safety Report 20057898 (Version 1)
Quarter: 2021Q4

REPORT INFORMATION
  Report Type: Spontaneous
  Country: US (occurrence: None)
  Receive Date: 20211110
  Receipt Date: 20211110
  Transmission Date: 20220303
  Serious: Yes (Life-Threatening, Hospitalization)
  Sender: FDA-Public Use
  Company Number: None

PATIENT
  Age: 68 Year
  Sex: Female
  Weight: 70.31 kg

DRUGS (1)
  1. ZESTRIL [Suspect]
     Active Substance: LISINOPRIL
     Dates: start: 20211101, end: 20211110

REACTIONS (5)
  - Dizziness [None]
  - Chest pain [None]
  - Fatigue [None]
  - Dyspnoea [None]
  - Hypoaesthesia [None]

NARRATIVE: CASE EVENT DATE: 20211110
